FAERS Safety Report 11178127 (Version 1)
Quarter: 2015Q2

REPORT INFORMATION
  Report Type: Spontaneous
  Country: US (occurrence: None)
  Receive Date: 20150609
  Receipt Date: 20150609
  Transmission Date: 20150821
  Serious: Yes (Disabling, Other)
  Sender: FDA-Public Use
  Company Number: None

PATIENT
  Age: 70 Year
  Sex: Female
  Weight: 104.78 kg

DRUGS (16)
  1. SERTRALINE [Concomitant]
     Active Substance: SERTRALINE HYDROCHLORIDE
  2. NAPROXEN. [Concomitant]
     Active Substance: NAPROXEN
  3. GABAPENTIN. [Concomitant]
     Active Substance: GABAPENTIN
  4. BUSPIRONE [Concomitant]
     Active Substance: BUSPIRONE HYDROCHLORIDE
  5. FENTANYL TRANDSERMAL [Concomitant]
  6. HYDROCODONE BITARTRATE AND ACETAMINOPHEN [Concomitant]
     Active Substance: ACETAMINOPHEN\HYDROCODONE BITARTRATE
  7. TIZANIDINE (TIZANIDINE) [Concomitant]
     Active Substance: TIZANIDINE
  8. NUVIGIL [Concomitant]
     Active Substance: ARMODAFINIL
  9. ATORVASTATIN [Concomitant]
     Active Substance: ATORVASTATIN
  10. LISINOPRIL. [Concomitant]
     Active Substance: LISINOPRIL
  11. SMOOTH MOVE HERBAL TEA [Concomitant]
  12. CIPROFLOXACIN. [Suspect]
     Active Substance: CIPROFLOXACIN
  13. LEVAQUIN [Suspect]
     Active Substance: LEVOFLOXACIN
     Indication: DRUG THERAPY
     Dosage: CIPROFLOXACIN
  14. DULOXETINE [Concomitant]
     Active Substance: DULOXETINE
  15. HYDROCHLOROTHIAZIDE. [Concomitant]
     Active Substance: HYDROCHLOROTHIAZIDE
  16. METFORMIN [Concomitant]
     Active Substance: METFORMIN HYDROCHLORIDE

REACTIONS (7)
  - Arthralgia [None]
  - Muscle injury [None]
  - Pain [None]
  - Insomnia [None]
  - Crying [None]
  - Asthenia [None]
  - Back pain [None]
